FAERS Safety Report 4897490-7 (Version None)
Quarter: 2006Q1

REPORT INFORMATION
  Report Type: 
  Country: None (occurrence: None)
  Receive Date: 20060201
  Receipt Date: 20060120
  Transmission Date: 20060701
  Serious: Yes (Hospitalization)
  Sender: FDA-Public Use
  Company Number: FR-BRISTOL-MYERS SQUIBB COMPANY-13255013

PATIENT
  Age: 69 Year
  Sex: Male

DRUGS (1)
  1. ELISOR TABS 20 MG [Suspect]
     Route: 048
     Dates: end: 20051101

REACTIONS (1)
  - PULMONARY FIBROSIS [None]
